FAERS Safety Report 20775958 (Version 1)
Quarter: 2022Q2

REPORT INFORMATION
  Report Type: Report from Study
  Country: GB (occurrence: GB)
  Receive Date: 20220502
  Receipt Date: 20220502
  Transmission Date: 20220721
  Serious: Yes (Other)
  Sender: FDA-Public Use
  Company Number: GB-NOVARTISPH-NVSC2022GB100551

PATIENT
  Age: 43 Year
  Sex: Female

DRUGS (1)
  1. MAYZENT [Suspect]
     Active Substance: SIPONIMOD
     Indication: Secondary progressive multiple sclerosis
     Dosage: 2 MG, QD
     Route: 048
     Dates: start: 20220328

REACTIONS (11)
  - Multiple sclerosis [Not Recovered/Not Resolved]
  - Malaise [Unknown]
  - Pain [Unknown]
  - Odynophagia [Unknown]
  - Mobility decreased [Unknown]
  - Hand deformity [Unknown]
  - Gastroenteritis viral [Recovering/Resolving]
  - Balance disorder [Unknown]
  - Headache [Unknown]
  - Vomiting [Recovered/Resolved]
  - Diarrhoea [Recovered/Resolved]

NARRATIVE: CASE EVENT DATE: 20220418
